FAERS Safety Report 17625765 (Version 1)
Quarter: 2020Q2

REPORT INFORMATION
  Report Type: Report from Study
  Country: GB (occurrence: GB)
  Receive Date: 20200404
  Receipt Date: 20200404
  Transmission Date: 20200713
  Serious: Yes (Other)
  Sender: FDA-Public Use
  Company Number: GB-ROCHE-2573472

PATIENT
  Age: 54 Year
  Sex: Male

DRUGS (1)
  1. ROACTEMRA [Suspect]
     Active Substance: TOCILIZUMAB
     Indication: TEMPORAL ARTERITIS
     Route: 058
     Dates: start: 2019

REACTIONS (4)
  - Spinal disorder [Unknown]
  - Muscle spasms [Unknown]
  - Sneezing [Unknown]
  - Nasopharyngitis [Unknown]
